FAERS Safety Report 5874079-4 (Version None)
Quarter: 2008Q3

REPORT INFORMATION
  Report Type: 
  Country: None (occurrence: None)
  Receive Date: 20080908
  Receipt Date: 20080828
  Transmission Date: 20090109
  Serious: Yes (Death)
  Sender: FDA-Public Use
  Company Number: US-WYE-H01817707

PATIENT
  Sex: Male
  Weight: 100.79 kg

DRUGS (10)
  1. EFFEXOR XR [Suspect]
     Indication: DEPRESSION
  2. CELEBREX [Concomitant]
  3. AMBIEN [Concomitant]
  4. CARAFATE [Concomitant]
  5. COZAAR [Concomitant]
  6. KLONOPIN [Concomitant]
  7. BUSPAR [Concomitant]
  8. RELAFEN [Concomitant]
  9. PAXIL [Suspect]
     Indication: DEPRESSION
  10. NEXIUM [Concomitant]

REACTIONS (2)
  - COMPLETED SUICIDE [None]
  - GUN SHOT WOUND [None]
